FAERS Safety Report 8773160 (Version 1)
Quarter: 2012Q4

REPORT INFORMATION
  Report Type: 
  Country: US (occurrence: US)
  Receive Date: 20120907
  Receipt Date: 20120907
  Transmission Date: 20130627
  Serious: Yes (Other)
  Sender: FDA-Public Use
  Company Number: US-PURDUE-USA-2012-0092458

PATIENT
  Age: 86 None
  Sex: Female

DRUGS (2)
  1. SENOKOT [Suspect]
     Indication: DIVERTICULITIS
     Dosage: 8.5mg/50mg, 2 tabs once per day
     Route: 048
     Dates: end: 201207
  2. MIRALAX [Suspect]
     Indication: DIVERTICULITIS
     Dosage: 1 Capful, daily
     Route: 048
     Dates: start: 20111111, end: 201207

REACTIONS (4)
  - Diarrhoea [Recovered/Resolved]
  - Vomiting [Recovered/Resolved]
  - Abdominal pain [Recovered/Resolved]
  - Dehydration [Unknown]
